FAERS Safety Report 9006044 (Version 1)
Quarter: 2013Q1

REPORT INFORMATION
  Report Type: Spontaneous
  Country: NZ (occurrence: NZ)
  Receive Date: 20130109
  Receipt Date: 20130109
  Transmission Date: 20140127
  Serious: Yes (Hospitalization)
  Sender: FDA-Public Use
  Company Number: PHHY2013NZ001482

PATIENT
  Age: 56 Year
  Sex: Male
  Weight: 90 kg

DRUGS (14)
  1. VINCRISTINE SULFATE [Suspect]
     Indication: B-CELL LYMPHOMA
  2. DOXORUBICIN HYDROCHLORIDE [Suspect]
     Indication: B-CELL LYMPHOMA
  3. PREDNISON [Suspect]
     Indication: B-CELL LYMPHOMA
  4. RITUXIMAB [Suspect]
     Indication: B-CELL LYMPHOMA
     Dosage: 800 MG, TIW
     Route: 042
     Dates: start: 20121120
  5. CYCLOPHOSPHAMIDE [Suspect]
     Indication: B-CELL LYMPHOMA
  6. PARACETAMOL [Concomitant]
     Dates: start: 20121120
  7. ZOPICLONE [Concomitant]
     Indication: INSOMNIA
  8. CETIRIZINE HYDROCHLORIDE [Concomitant]
     Indication: SEASONAL ALLERGY
  9. ALLOPURINOL [Concomitant]
     Indication: GOUT
     Dates: start: 20121116
  10. OMEPRAZOLE [Concomitant]
     Indication: PRODUCT USED FOR UNKNOWN INDICATION
     Dates: start: 20121121
  11. DOMPERIDONE [Concomitant]
     Indication: NAUSEA
     Dates: start: 20121120
  12. PROMETHAZINE [Concomitant]
     Indication: NAUSEA
     Route: 042
     Dates: start: 20121120
  13. ONDANSETRON [Concomitant]
     Indication: NAUSEA
     Dates: start: 20121120
  14. NAPROXEN [Concomitant]
     Indication: BACK PAIN

REACTIONS (3)
  - Febrile neutropenia [Recovered/Resolved]
  - Oropharyngeal pain [Unknown]
  - Streptococcal infection [Unknown]
